FAERS Safety Report 17297013 (Version 1)
Quarter: 2020Q1

REPORT INFORMATION
  Report Type: Spontaneous
  Country: US (occurrence: US)
  Receive Date: 20200121
  Receipt Date: 20200121
  Transmission Date: 20200409
  Serious: Yes (Hospitalization, Other)
  Sender: FDA-Public Use
  Company Number: US-ASTRAZENECA-2020SE07125

PATIENT
  Age: 16885 Day
  Sex: Female

DRUGS (37)
  1. MELATONIN [Concomitant]
     Active Substance: MELATONIN
     Indication: SLEEP DISORDER
     Dates: start: 2013
  2. PEPCID [Concomitant]
     Active Substance: FAMOTIDINE
     Dosage: COMPLETE OTC
     Dates: start: 2005, end: 2017
  3. TRAMADOL. [Concomitant]
     Active Substance: TRAMADOL
     Indication: PAIN
     Dates: start: 2008, end: 2016
  4. ADDERALL [Concomitant]
     Active Substance: AMPHETAMINE ASPARTATE\AMPHETAMINE SULFATE\DEXTROAMPHETAMINE SACCHARATE\DEXTROAMPHETAMINE SULFATE
     Indication: ANXIETY
     Dates: start: 2005
  5. CYMBALTA [Concomitant]
     Active Substance: DULOXETINE HYDROCHLORIDE
     Indication: DEPRESSION
     Dates: start: 2009, end: 2011
  6. HYZAAR [Concomitant]
     Active Substance: HYDROCHLOROTHIAZIDE\LOSARTAN POTASSIUM
     Indication: HYPERTENSION
     Dates: start: 2007, end: 2011
  7. DICLOFENAC [Concomitant]
     Active Substance: DICLOFENAC
  8. TYLENOL [Concomitant]
     Active Substance: ACETAMINOPHEN
     Indication: ANALGESIC THERAPY
     Dates: start: 2005
  9. LOSARTAN. [Concomitant]
     Active Substance: LOSARTAN
     Indication: HYPERTENSION
     Dates: start: 2010
  10. VITAMIN D3 [Concomitant]
     Active Substance: CHOLECALCIFEROL
     Indication: CHRONIC KIDNEY DISEASE
     Dates: start: 2017
  11. TAGAMET HB [Concomitant]
     Active Substance: CIMETIDINE
     Dosage: OTC
     Dates: start: 2005, end: 2017
  12. TUMS [Concomitant]
     Active Substance: CALCIUM CARBONATE
     Dosage: 1-2 TABLETS
     Dates: start: 2005, end: 2006
  13. HYDROCHLOROTIZE [Concomitant]
     Indication: FLUID RETENTION
     Dates: start: 2018
  14. BUPROPION. [Concomitant]
     Active Substance: BUPROPION
     Indication: DEPRESSION
     Dates: start: 2017
  15. CIPROFLOXACIN. [Concomitant]
     Active Substance: CIPROFLOXACIN
     Indication: ANTIBIOTIC THERAPY
     Dates: start: 2013, end: 2014
  16. METHYLPHENIDATE. [Concomitant]
     Active Substance: METHYLPHENIDATE
     Dates: start: 20170424
  17. PREVACID [Suspect]
     Active Substance: LANSOPRAZOLE
     Indication: GASTROOESOPHAGEAL REFLUX DISEASE
     Route: 065
     Dates: start: 2007, end: 2011
  18. PEPTO-BISMOL [Concomitant]
     Active Substance: BISMUTH SUBSALICYLATE
     Dosage: 30 ML
     Dates: start: 2005, end: 2006
  19. PREVACID [Suspect]
     Active Substance: LANSOPRAZOLE
     Indication: GASTROOESOPHAGEAL REFLUX DISEASE
     Dosage: GENERIC LANSOPRAZOLE
     Route: 065
     Dates: start: 2010, end: 2015
  20. VITAMIN B6 [Concomitant]
     Active Substance: PYRIDOXINE HYDROCHLORIDE
     Indication: CHRONIC KIDNEY DISEASE
     Dates: start: 2017
  21. TUMS [Concomitant]
     Active Substance: CALCIUM CARBONATE
     Dosage: 1-2 TABLETS
     Dates: start: 2007, end: 2017
  22. CLONAZEPAM. [Concomitant]
     Active Substance: CLONAZEPAM
     Dates: start: 20170424
  23. NEXIUM [Suspect]
     Active Substance: ESOMEPRAZOLE MAGNESIUM
     Indication: GASTROOESOPHAGEAL REFLUX DISEASE
     Route: 048
     Dates: start: 2013, end: 2015
  24. PEPCID [Concomitant]
     Active Substance: FAMOTIDINE
     Dosage: AC OTC
     Dates: start: 2005, end: 2017
  25. ATENOLOL. [Concomitant]
     Active Substance: ATENOLOL
     Indication: HYPERTENSION
     Dates: start: 2007
  26. PRILOSEC OTC [Suspect]
     Active Substance: OMEPRAZOLE MAGNESIUM
     Indication: GASTROOESOPHAGEAL REFLUX DISEASE
     Route: 048
     Dates: start: 2015, end: 2018
  27. IBUPROFEN. [Concomitant]
     Active Substance: IBUPROFEN
     Indication: BACK PAIN
     Dates: start: 2015
  28. CLARITIN-D NOS [Concomitant]
     Active Substance: LORATADINE\PSEUDOEPHEDRINE SULFATE
     Indication: MULTIPLE ALLERGIES
     Dates: start: 2012, end: 2017
  29. CARISOPRODOL. [Concomitant]
     Active Substance: CARISOPRODOL
     Indication: BACK PAIN
     Dates: start: 2007, end: 2013
  30. PHENTERMINE. [Concomitant]
     Active Substance: PHENTERMINE
     Indication: WEIGHT DECREASED
     Dates: start: 2010
  31. ZELNORM [Concomitant]
     Active Substance: TEGASEROD MALEATE
  32. ESTRADIOL. [Concomitant]
     Active Substance: ESTRADIOL
     Dates: start: 20170424
  33. OMEPRAZOLE. [Suspect]
     Active Substance: OMEPRAZOLE
     Indication: GASTROOESOPHAGEAL REFLUX DISEASE
     Dosage: GENERIC OMEPRAZOLE
     Route: 065
     Dates: start: 20190305
  34. VITAMIN B12 [Concomitant]
     Active Substance: CYANOCOBALAMIN
     Indication: VITAMIN SUPPLEMENTATION
     Dates: start: 2013
  35. AMLODIPINE [Concomitant]
     Active Substance: AMLODIPINE BESYLATE
     Indication: ANGINA PECTORIS
     Dates: start: 201901
  36. ESCITALOPRAM [Concomitant]
     Active Substance: ESCITALOPRAM OXALATE
     Indication: ANXIETY
     Dates: start: 201909
  37. HYDROCODONE/ACETAMINOPHEN [Concomitant]
     Active Substance: ACETAMINOPHEN\HYDROCODONE
     Indication: BACK PAIN
     Dates: start: 2012, end: 2019

REACTIONS (1)
  - Chronic kidney disease [Not Recovered/Not Resolved]

NARRATIVE: CASE EVENT DATE: 20171229
